FAERS Safety Report 17143903 (Version 1)
Quarter: 2019Q4

REPORT INFORMATION
  Report Type: Spontaneous
  Country: ES (occurrence: ES)
  Receive Date: 20191212
  Receipt Date: 20191212
  Transmission Date: 20200122
  Serious: Yes (Other)
  Sender: FDA-Public Use
  Company Number: NVSC2019ES062278

PATIENT
  Age: 56 Year
  Sex: Male

DRUGS (8)
  1. FILGRASTIM [Suspect]
     Active Substance: FILGRASTIM
     Indication: NEUTROPENIA
     Dosage: UNK
     Route: 065
  2. REVLIMID [Suspect]
     Active Substance: LENALIDOMIDE
     Dosage: 25 MG, QD (25 MG/DAY WITH 21 DAYS FOR 28-DAY CYCLES)
     Route: 065
     Dates: start: 20170717
  3. REVLIMID [Suspect]
     Active Substance: LENALIDOMIDE
     Dosage: 15 MG, QD (DOSE -2)
     Route: 065
  4. KYPROLIS [Suspect]
     Active Substance: CARFILZOMIB
     Indication: PLASMA CELL MYELOMA
     Dosage: 27 MG/M2 (27 MILLIGRAM/SQ. METER, ON DAYS 1, 2, 8, 9, 15, AND 16)
     Route: 065
  5. REVLIMID [Suspect]
     Active Substance: LENALIDOMIDE
     Indication: PLASMA CELL MYELOMA
     Dosage: 20 MG
     Route: 065
  6. KYPROLIS [Suspect]
     Active Substance: CARFILZOMIB
     Dosage: UNK (CYCLES 13-18 ADMINISTERED DISCONTINUING THE DOSE ON INTERMEDIATE DAYS)
     Route: 065
  7. DEXAMETHASONE. [Concomitant]
     Active Substance: DEXAMETHASONE
     Indication: PLASMA CELL MYELOMA
     Dosage: 40 MG, QW
     Route: 065
     Dates: start: 20170717
  8. KYPROLIS [Suspect]
     Active Substance: CARFILZOMIB
     Dosage: 20 MG/M2 (20 MILLIGRAM/SQ. METER, ON DAYS 1, 2, 8, 9, 15, AND 16)
     Route: 065
     Dates: start: 20170717

REACTIONS (5)
  - Diarrhoea [Unknown]
  - Salmonellosis [Unknown]
  - Pyrexia [Unknown]
  - Anaemia [Recovered/Resolved]
  - Neutropenia [Unknown]
